FAERS Safety Report 8255264-3 (Version None)
Quarter: 2012Q1

REPORT INFORMATION
  Report Type: 
  Country: None (occurrence: None)
  Receive Date: 20120329
  Receipt Date: 20120320
  Transmission Date: 20120608
  Serious: Yes (Other)
  Sender: FDA-Public Use
  Company Number: DSA_55750_2012

PATIENT
  Sex: Female

DRUGS (1)
  1. WELLBUTRIN XL [Suspect]
     Indication: PRODUCT USED FOR UNKNOWN INDICATION
     Dosage: (300 MG FREQUENCY UNSPECIFIED)
     Dates: start: 20100301

REACTIONS (3)
  - BASAL CELL CARCINOMA [None]
  - NEOPLASM [None]
  - POLYP [None]
